FAERS Safety Report 6970373-4 (Version None)
Quarter: 2010Q3

REPORT INFORMATION
  Report Type: 
  Country: None (occurrence: None)
  Receive Date: 20100903
  Receipt Date: 20100831
  Transmission Date: 20110219
  Serious: Yes (Death)
  Sender: FDA-Public Use
  Company Number: 2010GW000694

PATIENT
  Age: 85 Year
  Sex: Male

DRUGS (2)
  1. MAXAIR [Suspect]
     Indication: CHRONIC OBSTRUCTIVE PULMONARY DISEASE
     Dosage: 0.2 MG; ; INH
     Route: 055
     Dates: start: 20040101, end: 20060101
  2. OXYGEN [Concomitant]

REACTIONS (3)
  - CARDIAC DISORDER [None]
  - COUGH [None]
  - MYOCARDIAL INFARCTION [None]
